FAERS Safety Report 23484057 (Version 4)
Quarter: 2025Q3

REPORT INFORMATION
  Report Type: Spontaneous
  Country: EU (occurrence: EU)
  Receive Date: 20240205
  Receipt Date: 20250808
  Transmission Date: 20251020
  Serious: Yes (Hospitalization, Other)
  Sender: CELLTRION
  Company Number: EU-CELLTRION INC.-2024DE002468

PATIENT

DRUGS (10)
  1. RITUXIMAB [Suspect]
     Active Substance: RITUXIMAB
     Indication: Systemic scleroderma
     Route: 065
  2. RITUXIMAB [Suspect]
     Active Substance: RITUXIMAB
     Indication: Autologous haematopoietic stem cell transplant
     Route: 065
  3. CYCLOPHOSPHAMIDE [Suspect]
     Active Substance: CYCLOPHOSPHAMIDE
     Indication: Product used for unknown indication
  4. CAPTOPRIL [Concomitant]
     Active Substance: CAPTOPRIL
     Indication: Blood pressure measurement
     Route: 065
  5. CAPTOPRIL [Concomitant]
     Active Substance: CAPTOPRIL
     Indication: Hypertension
  6. UPADACITINIB [Concomitant]
     Active Substance: UPADACITINIB
     Indication: Product used for unknown indication
     Route: 065
  7. AMLODIPINE [Concomitant]
     Active Substance: AMLODIPINE BESYLATE
     Indication: Hypertension
     Route: 065
  8. AMLODIPINE [Concomitant]
     Active Substance: AMLODIPINE BESYLATE
     Indication: Blood pressure measurement
  9. GRANULOCYTE COLONY-STIMULATING FACTOR NOS [Concomitant]
     Active Substance: GRANULOCYTE COLONY-STIMULATING FACTOR NOS
  10. SECUKINUMAB [Concomitant]
     Active Substance: SECUKINUMAB
     Indication: Product used for unknown indication
     Route: 065
     Dates: start: 202306

REACTIONS (12)
  - Autoimmune disorder [Unknown]
  - Systemic scleroderma [Unknown]
  - Schistocytosis [Unknown]
  - Musculoskeletal stiffness [Unknown]
  - Loss of personal independence in daily activities [Unknown]
  - Haemolysis [Unknown]
  - Renal failure [Unknown]
  - Hypertension [Unknown]
  - Arthralgia [Unknown]
  - Myelosuppression [Unknown]
  - Drug ineffective for unapproved indication [Unknown]
  - Drug ineffective [Unknown]

NARRATIVE: CASE EVENT DATE: 20230101
